FAERS Safety Report 22102256 (Version 1)
Quarter: 2023Q1

REPORT INFORMATION
  Report Type: Spontaneous
  Country: IT (occurrence: IT)
  Receive Date: 20230316
  Receipt Date: 20230316
  Transmission Date: 20230417
  Serious: Yes (Hospitalization, Other)
  Sender: FDA-Public Use
  Company Number: IT-002147023-NVSC2023IT055457

PATIENT
  Age: 55 Year
  Sex: Male

DRUGS (1)
  1. NILOTINIB [Suspect]
     Active Substance: NILOTINIB
     Indication: Chronic myeloid leukaemia
     Dosage: UNK
     Route: 065
     Dates: start: 20120601, end: 20121001

REACTIONS (7)
  - Cardiac tamponade [Unknown]
  - Pericarditis [Unknown]
  - Atrial fibrillation [Recovered/Resolved]
  - Pericardial haemorrhage [Unknown]
  - Thrombocytosis [Unknown]
  - Cytogenetic analysis abnormal [Unknown]
  - Drug resistance [Unknown]
